FAERS Safety Report 8842969 (Version 3)
Quarter: 2012Q4

REPORT INFORMATION
  Report Type: 
  Country: US (occurrence: US)
  Receive Date: 20121016
  Receipt Date: 20121030
  Transmission Date: 20130627
  Serious: Yes (Other)
  Sender: FDA-Public Use
  Company Number: US-VERTEX PHARMACEUTICAL INC.-2012-022853

PATIENT
  Age: 47 Year
  Sex: Female
  Weight: 71 kg

DRUGS (12)
  1. VX-950 [Suspect]
     Indication: HEPATITIS C
     Dosage: 750 mg, tid
     Route: 048
     Dates: start: 20120812
  2. RIBAVIRIN [Concomitant]
     Indication: HEPATITIS C
     Dosage: 1000 mg, qd
     Dates: start: 20120812
  3. RIBAVIRIN [Concomitant]
     Dosage: 600 mg, qd
     Dates: start: 20121006
  4. RIBAVIRIN [Concomitant]
     Dosage: 200 mg, bid
     Dates: start: 20121023
  5. PEGASYS [Concomitant]
     Indication: HEPATITIS C
     Dosage: 180 ?g, qw
     Route: 058
     Dates: start: 20120812
  6. LOESTRIN FE [Concomitant]
     Dosage: 1.5/30
  7. AMBIEN [Concomitant]
     Dosage: 5 mg, UNK
  8. MOBIC [Concomitant]
     Dosage: 7.5 mg, UNK
  9. GLUCOPHAGE [Concomitant]
     Dosage: 1000 mg, UNK
  10. WELLBUTRIN XL [Concomitant]
     Dosage: 150 mg, UNK
  11. MULTIVITAMIN                       /00097801/ [Concomitant]
  12. BENADRYL                           /00000402/ [Concomitant]
     Dosage: 25 mg, UNK

REACTIONS (7)
  - Anaemia [Unknown]
  - White blood cell count decreased [Unknown]
  - Headache [Unknown]
  - Pain in jaw [Unknown]
  - Malaise [Unknown]
  - Vomiting [Not Recovered/Not Resolved]
  - Nausea [Recovered/Resolved]
